FAERS Safety Report 9234271 (Version 1)
Quarter: 2013Q2

REPORT INFORMATION
  Report Type: Spontaneous
  Country: JP (occurrence: JP)
  Receive Date: 20130416
  Receipt Date: 20130416
  Transmission Date: 20140414
  Serious: Yes (Other)
  Sender: FDA-Public Use
  Company Number: PHHY2013JP036185

PATIENT
  Age: 33 Year
  Sex: Female

DRUGS (2)
  1. OMEPRAZOLE SANDOZ [Suspect]
     Dosage: 40 MG, DAILY
  2. VORICONAZOLE [Concomitant]
     Indication: BRONCHOPULMONARY ASPERGILLOSIS
     Dosage: 800 MG, UNK

REACTIONS (1)
  - Liver disorder [Recovering/Resolving]
